FAERS Safety Report 8839609 (Version 1)
Quarter: 2012Q4

REPORT INFORMATION
  Report Type: 
  Country: US (occurrence: US)
  Receive Date: 20121015
  Receipt Date: 20121015
  Transmission Date: 20130627
  Serious: Yes (Other)
  Sender: FDA-Public Use
  Company Number: PHEH2012US020070

PATIENT
  Age: 63 Year
  Sex: Female
  Weight: 153 kg

DRUGS (9)
  1. EXJADE [Suspect]
     Indication: IRON OVERLOAD
     Dosage: 1375 mg, QD
     Route: 048
  2. GLIPIZIDE [Concomitant]
     Dosage: 10 mg, UNK
     Route: 048
  3. METFORMIN [Concomitant]
     Dosage: 1000 mg, UNK
     Route: 048
  4. CARVEDILOL [Concomitant]
     Dosage: 12.5 mg, UNK
     Route: 048
  5. VITAMIN D [Concomitant]
     Dosage: 400 U, UNK
     Route: 048
  6. CALCIUM [Concomitant]
     Dosage: 500 U, UNK
     Route: 048
  7. TRICOR [Concomitant]
     Dosage: 145 mg, UNK
     Route: 048
  8. LEVOTHYROXINE [Concomitant]
     Dosage: 100 ug, UNK
     Route: 048
  9. ACYCLOVIR [Concomitant]
     Dosage: 200 mg, UNK
     Route: 048

REACTIONS (2)
  - Urinary tract infection [Unknown]
  - Hyperchlorhydria [Unknown]
